FAERS Safety Report 21682724 (Version 1)
Quarter: 2022Q4

REPORT INFORMATION
  Report Type: Report from Study
  Country: IT (occurrence: IT)
  Receive Date: 20221205
  Receipt Date: 20221205
  Transmission Date: 20230112
  Serious: Yes (Life-Threatening, Hospitalization, Other)
  Sender: FDA-Public Use
  Company Number: IT-002147023-PHHY2017IT104422

PATIENT
  Sex: Female
  Weight: 10.7 kg

DRUGS (10)
  1. METHOTREXATE [Suspect]
     Active Substance: METHOTREXATE
     Indication: Acute lymphocytic leukaemia
     Dosage: 8 MG
     Route: 037
     Dates: start: 20141028, end: 20141028
  2. METHOTREXATE [Suspect]
     Active Substance: METHOTREXATE
     Dosage: 8 MG, UNK
     Route: 037
     Dates: start: 20141104, end: 20141104
  3. GLIVEC [Suspect]
     Active Substance: IMATINIB MESYLATE
     Indication: Acute lymphocytic leukaemia
     Dosage: 135 MG, QD
     Route: 048
     Dates: start: 20141008, end: 20141109
  4. GLIVEC [Suspect]
     Active Substance: IMATINIB MESYLATE
     Dosage: 110 MG, QD
     Route: 048
     Dates: start: 20141125, end: 20150115
  5. GLIVEC [Suspect]
     Active Substance: IMATINIB MESYLATE
     Dosage: 110 MG, QD
     Route: 048
     Dates: start: 20150211, end: 20150217
  6. GLIVEC [Suspect]
     Active Substance: IMATINIB MESYLATE
     Dosage: 110 MG, QD
     Route: 048
     Dates: start: 20150303, end: 20150316
  7. GLIVEC [Suspect]
     Active Substance: IMATINIB MESYLATE
     Dosage: 100 MG, QD
     Route: 048
     Dates: start: 20150418
  8. CYTARABINE [Suspect]
     Active Substance: CYTARABINE
     Indication: Acute lymphocytic leukaemia
     Dosage: 75 MG/M2
     Route: 042
     Dates: start: 20141028
  9. CYTARABINE [Suspect]
     Active Substance: CYTARABINE
     Dosage: 75 MG/M2
     Route: 042
     Dates: start: 20141104, end: 20141107
  10. CHLORPHENIRAMINE MALEATE [Suspect]
     Active Substance: CHLORPHENIRAMINE MALEATE
     Indication: Acute lymphocytic leukaemia
     Dosage: 950 MG
     Route: 042
     Dates: start: 20141027, end: 20141027

REACTIONS (11)
  - Aplasia [Recovered/Resolved with Sequelae]
  - Mucosal inflammation [Recovered/Resolved]
  - Graft versus host disease [Recovered/Resolved with Sequelae]
  - Febrile neutropenia [Recovered/Resolved]
  - Escherichia infection [Recovered/Resolved with Sequelae]
  - Clostridium difficile infection [Recovered/Resolved with Sequelae]
  - Urinary tract infection [Recovered/Resolved]
  - Pneumonia [Recovered/Resolved]
  - Haematotoxicity [Recovered/Resolved]
  - Pyrexia [Recovered/Resolved]
  - Pain [Unknown]

NARRATIVE: CASE EVENT DATE: 20141022
